FAERS Safety Report 6554055-9 (Version None)
Quarter: 2010Q1

REPORT INFORMATION
  Report Type: 
  Country: None (occurrence: None)
  Receive Date: 20100125
  Receipt Date: 20100125
  Transmission Date: 20100710
  Serious: Yes (Other)
  Sender: FDA-Public Use
  Company Number: None

PATIENT
  Age: 56 Year
  Sex: Male
  Weight: 72.5755 kg

DRUGS (1)
  1. ASPIRIN [Suspect]
     Indication: ARTERIAL BYPASS OPERATION
     Dosage: 1 TABLET ONCE A DAY PO
     Route: 048
     Dates: start: 20100110, end: 20100122

REACTIONS (2)
  - PRURITUS [None]
  - URTICARIA [None]
